FAERS Safety Report 9807488 (Version 1)
Quarter: 2014Q1

REPORT INFORMATION
  Report Type: Spontaneous
  Country: US (occurrence: US)
  Receive Date: 20140110
  Receipt Date: 20140110
  Transmission Date: 20141002
  Serious: No
  Sender: FDA-Public Use
  Company Number: US-SANOFI-AVENTIS-2013SA088745

PATIENT
  Age: 89 Year
  Sex: Female

DRUGS (5)
  1. PLAVIX [Suspect]
     Route: 048
  2. TRAZODONE [Concomitant]
     Indication: SLEEP DISORDER
     Route: 065
  3. SEROQUEL [Concomitant]
     Indication: AGITATION
     Route: 065
  4. LIPITOR [Concomitant]
     Indication: BLOOD CHOLESTEROL
     Route: 065
  5. COLACE [Concomitant]
     Indication: ABNORMAL FAECES
     Route: 065

REACTIONS (1)
  - Dysphagia [Unknown]
